FAERS Safety Report 16745051 (Version 1)
Quarter: 2019Q3

REPORT INFORMATION
  Report Type: Spontaneous
  Country: US (occurrence: US)
  Receive Date: 20190827
  Receipt Date: 20190827
  Transmission Date: 20191005
  Serious: Yes (Other)
  Sender: FDA-Public Use
  Company Number: US-BEH-2019106053

PATIENT
  Age: 48 Year
  Sex: Male

DRUGS (1)
  1. HIZENTRA [Suspect]
     Active Substance: HUMAN IMMUNOGLOBULIN G
     Dosage: 24 GRAM, VIA 5 SITES, QW
     Route: 065
     Dates: start: 201907

REACTIONS (3)
  - Myositis [Unknown]
  - Discomfort [Unknown]
  - Swelling [Unknown]
